FAERS Safety Report 12450921 (Version 1)
Quarter: 2016Q2

REPORT INFORMATION
  Report Type: Spontaneous
  Country: CN (occurrence: CN)
  Receive Date: 20160609
  Receipt Date: 20160609
  Transmission Date: 20160815
  Serious: Yes (Hospitalization)
  Sender: FDA-Public Use
  Company Number: CN-ASTRAZENECA-2016SE61324

PATIENT
  Sex: Male
  Weight: 51 kg

DRUGS (3)
  1. ESOMEPRAZOLE [Suspect]
     Active Substance: ESOMEPRAZOLE
     Indication: PANCREATITIS ACUTE
     Route: 042
     Dates: start: 20150909, end: 20150914
  2. ESOMEPRAZOLE [Suspect]
     Active Substance: ESOMEPRAZOLE
     Indication: GASTRIC DISORDER
     Route: 042
     Dates: start: 20150909, end: 20150914
  3. GROWTH INHIBITION PEPTIDE HORMONES [Concomitant]

REACTIONS (2)
  - Thrombocytopenia [Recovered/Resolved]
  - Ecchymosis [Unknown]
